FAERS Safety Report 13952720 (Version 2)
Quarter: 2017Q3

REPORT INFORMATION
  Report Type: Spontaneous
  Country: GR (occurrence: GR)
  Receive Date: 20170911
  Receipt Date: 20170925
  Transmission Date: 20171128
  Serious: Yes (Death, Life-Threatening, Hospitalization)
  Sender: FDA-Public Use
  Company Number: GR-B.I. PHARMACEUTICALS,INC./RIDGEFIELD-2017-BI-049597

PATIENT
  Age: 75 Year
  Sex: Female

DRUGS (2)
  1. PRADAXA [Suspect]
     Active Substance: DABIGATRAN ETEXILATE MESYLATE
     Indication: ATRIAL FIBRILLATION
     Route: 048
     Dates: start: 201707, end: 20170825
  2. PRADAXA [Suspect]
     Active Substance: DABIGATRAN ETEXILATE MESYLATE
     Indication: CEREBROVASCULAR ACCIDENT PROPHYLAXIS
     Dosage: START DATE: 03 YEARS AGO
     Route: 048
     Dates: end: 201707

REACTIONS (6)
  - Pyrexia [Recovered/Resolved]
  - Multiple organ dysfunction syndrome [Fatal]
  - Viral infection [Recovered/Resolved]
  - Lethargy [Unknown]
  - Cerebral disorder [Unknown]
  - Hepatic encephalopathy [Unknown]

NARRATIVE: CASE EVENT DATE: 20170813
